FAERS Safety Report 7352622-6 (Version None)
Quarter: 2011Q1

REPORT INFORMATION
  Report Type: 
  Country: None (occurrence: None)
  Receive Date: 20110315
  Receipt Date: 20110307
  Transmission Date: 20110831
  Serious: Yes (Hospitalization)
  Sender: FDA-Public Use
  Company Number: US-ELI_LILLY_AND_COMPANY-US201010007282

PATIENT
  Sex: Female

DRUGS (10)
  1. FORTEO [Suspect]
     Dosage: 20 UG, DAILY (1/D)
  2. ZETIA [Concomitant]
     Dosage: 10 MG, DAILY (1/D)
  3. SPIRONOLACTONE [Concomitant]
     Dosage: 25 MG, DAILY (1/D)
  4. CARVEDILOL [Concomitant]
     Dosage: 3.125 MG, DAILY (1/D)
  5. CALCIUM [Concomitant]
     Dosage: 600 MG, 2/D
  6. NORCO [Concomitant]
     Dosage: 20.65 MG, UNK
  7. VITAMIN D [Concomitant]
  8. FORTEO [Suspect]
     Indication: OSTEOPOROSIS
     Dosage: 20 UG, DAILY (1/D)
     Dates: start: 20100920
  9. CRESTOR [Concomitant]
     Dosage: 5 MG, DAILY (1/D)
  10. NORCO [Concomitant]
     Dosage: 10.325 MG, UNK

REACTIONS (10)
  - FEELING ABNORMAL [None]
  - JOINT STIFFNESS [None]
  - CONSTIPATION [None]
  - OEDEMA PERIPHERAL [None]
  - PAIN IN EXTREMITY [None]
  - MUSCULOSKELETAL PAIN [None]
  - SPINAL COMPRESSION FRACTURE [None]
  - BACK PAIN [None]
  - HYPOAESTHESIA [None]
  - MUSCLE SPASMS [None]
